FAERS Safety Report 9397610 (Version 1)
Quarter: 2013Q3

REPORT INFORMATION
  Report Type: Spontaneous
  Country: US (occurrence: None)
  Receive Date: 20130711
  Receipt Date: 20130711
  Transmission Date: 20140515
  Serious: Yes (Other)
  Sender: FDA-Public Use
  Company Number: None

PATIENT
  Age: 67 Year
  Sex: Male

DRUGS (4)
  1. FORTEO [Suspect]
     Dosage: 20 MCG DAILY SQ
     Route: 058
     Dates: start: 20130322, end: 20130710
  2. TRAMADOL [Concomitant]
  3. CALCIUM [Concomitant]
  4. VIT D3 [Concomitant]

REACTIONS (3)
  - Prostate cancer [None]
  - Bone cancer [None]
  - Haematological malignancy [None]
